FAERS Safety Report 8209480-7 (Version None)
Quarter: 2012Q1

REPORT INFORMATION
  Report Type: 
  Country: None (occurrence: None)
  Receive Date: 20120314
  Receipt Date: 20111212
  Transmission Date: 20120608
  Serious: Yes (Other)
  Sender: FDA-Public Use
  Company Number: DE-PFIZER INC-2012064706

PATIENT
  Age: 75 Year
  Sex: Male

DRUGS (4)
  1. DIBLOCIN PP [Suspect]
     Dosage: 4 MG, UNK
     Route: 048
     Dates: start: 20060301
  2. METOPROLOL TARTRATE AND HYDROCHLOROTHIAZIDE [Concomitant]
     Dosage: UNK
     Route: 048
     Dates: start: 20060301
  3. ASPIRIN [Concomitant]
     Dosage: 100
     Route: 048
     Dates: start: 20060301
  4. HYDROCHLOROTHIAZIDE [Concomitant]
     Dosage: UNK
     Dates: start: 20060301

REACTIONS (2)
  - COUGH [None]
  - PLEURAL EFFUSION [None]
